FAERS Safety Report 19577945 (Version 1)
Quarter: 2021Q3

REPORT INFORMATION
  Report Type: Spontaneous
  Country: US (occurrence: US)
  Receive Date: 20210719
  Receipt Date: 20210719
  Transmission Date: 20211014
  Serious: No
  Sender: FDA-Public Use
  Company Number: US-PFIZER INC-2019454212

PATIENT
  Age: 72 Year
  Sex: Female
  Weight: 62.6 kg

DRUGS (4)
  1. PREMARIN [Suspect]
     Active Substance: ESTROGENS, CONJUGATED
     Indication: VULVOVAGINAL DRYNESS
  2. PREMARIN [Suspect]
     Active Substance: ESTROGENS, CONJUGATED
     Indication: URINARY TRACT INFECTION
  3. PREMARIN [Suspect]
     Active Substance: ESTROGENS, CONJUGATED
     Indication: VAGINAL DISCHARGE
  4. PREMARIN [Suspect]
     Active Substance: ESTROGENS, CONJUGATED
     Indication: VAGINAL ODOUR
     Dosage: 0.625MG, TO THE 1 ON THE APPLICATOR,

REACTIONS (6)
  - Urinary incontinence [Unknown]
  - Disease recurrence [Unknown]
  - Intentional product misuse [Unknown]
  - Off label use [Unknown]
  - Contraindicated product administered [Unknown]
  - Drug effective for unapproved indication [Unknown]
